FAERS Safety Report 5804945-7 (Version None)
Quarter: 2008Q3

REPORT INFORMATION
  Report Type: 
  Country: None (occurrence: None)
  Receive Date: 20080709
  Receipt Date: 20080627
  Transmission Date: 20090109
  Serious: Yes (Other)
  Sender: FDA-Public Use
  Company Number: US-PFIZER INC-2008049978

PATIENT
  Sex: Female
  Weight: 77.1 kg

DRUGS (5)
  1. CHANTIX [Suspect]
     Indication: SMOKING CESSATION THERAPY
     Route: 048
     Dates: start: 20080529, end: 20080601
  2. LEXAPRO [Concomitant]
  3. LIPITOR [Concomitant]
  4. IBUPROFEN [Concomitant]
  5. FIORICET [Concomitant]

REACTIONS (3)
  - ANXIETY [None]
  - MOOD ALTERED [None]
  - VIOLENCE-RELATED SYMPTOM [None]
